FAERS Safety Report 10517100 (Version 1)
Quarter: 2014Q4

REPORT INFORMATION
  Report Type: Spontaneous
  Country: None (occurrence: None)
  Receive Date: 20141003
  Receipt Date: 20141003
  Transmission Date: 20150528
  Serious: Yes (Other)
  Sender: FDA-Public Use
  Company Number: 1292153

PATIENT
  Age: 59 Year
  Sex: Female

DRUGS (3)
  1. TELAPREVIR (TELAPREVIR) [Suspect]
     Active Substance: TELAPREVIR
     Indication: HEPATITIS C
  2. PEGASYS [Suspect]
     Active Substance: PEGINTERFERON ALFA-2A
     Indication: HEPATITIS C
     Dates: start: 20130920
  3. RIBAVIRIN (RIBAVIRIN) [Suspect]
     Active Substance: RIBAVIRIN
     Indication: HEPATITIS C
     Dates: start: 20130920

REACTIONS (11)
  - Blood potassium decreased [None]
  - Suicidal ideation [None]
  - Diarrhoea [None]
  - Sleep disorder [None]
  - Panic reaction [None]
  - Decreased appetite [None]
  - Vertigo [None]
  - Depression [None]
  - Anaemia [None]
  - Mental disorder [None]
  - Fall [None]
